FAERS Safety Report 23987226 (Version 1)
Quarter: 2024Q2

REPORT INFORMATION
  Report Type: Spontaneous
  Country: US (occurrence: None)
  Receive Date: 20240618
  Receipt Date: 20240618
  Transmission Date: 20240716
  Serious: Yes (Disabling, Other)
  Sender: FDA-Public Use
  Company Number: None

PATIENT
  Age: 70 Year
  Sex: Female
  Weight: 44.1 kg

DRUGS (23)
  1. BELBUCA [Suspect]
     Active Substance: BUPRENORPHINE HYDROCHLORIDE
     Indication: Pain
     Dosage: OTHER QUANTITY : 60 BUCCAL FILM?FREQUENCY : EVERY 12 HOURS?
     Route: 048
  2. BUPRENORPHINE [Suspect]
     Active Substance: BUPRENORPHINE\BUPRENORPHINE HYDROCHLORIDE
     Indication: Pain
     Dosage: OTHER QUANTITY : 4 PATCH(ES)?OTHER FREQUENCY : WEEKLY?
     Route: 062
  3. ALENDRONATE [Suspect]
     Active Substance: ALENDRONATE SODIUM
  4. ATENOLOL [Concomitant]
     Active Substance: ATENOLOL
  5. B2 [Concomitant]
  6. MAGNESIUM [Concomitant]
     Active Substance: MAGNESIUM
  7. OXCARBAMAZIPHINE [Concomitant]
  8. LYRICA [Concomitant]
     Active Substance: PREGABALIN
  9. SULFASALIZINE [Concomitant]
  10. HUMIRA [Concomitant]
     Active Substance: ADALIMUMAB
  11. FOLIC ACID [Concomitant]
     Active Substance: FOLIC ACID
  12. CITALOPRAM [Concomitant]
     Active Substance: CITALOPRAM\CITALOPRAM HYDROBROMIDE
  13. PANTOPRAZOLE [Concomitant]
     Active Substance: PANTOPRAZOLE
  14. ACYCLOVIR [Concomitant]
     Active Substance: ACYCLOVIR
  15. TRAZODONE [Concomitant]
     Active Substance: TRAZODONE HYDROCHLORIDE
  16. ROPINIROLE [Concomitant]
     Active Substance: ROPINIROLE
  17. OXYBUTYNIN [Concomitant]
     Active Substance: OXYBUTYNIN\OXYBUTYNIN CHLORIDE
  18. VITAMIN D3 [Concomitant]
     Active Substance: CHOLECALCIFEROL
  19. VITAMIN A [Concomitant]
     Active Substance: VITAMIN A
  20. OMEGA-3 ACIDS [Concomitant]
     Active Substance: OMEGA-3 FATTY ACIDS
  21. HERBALS\TURMERIC [Concomitant]
     Active Substance: HERBALS\TURMERIC
  22. CALCIUM [Concomitant]
     Active Substance: CALCIUM
  23. VITAMIN C [Concomitant]
     Active Substance: ASCORBIC ACID

REACTIONS (2)
  - Tooth loss [None]
  - Tooth impacted [None]

NARRATIVE: CASE EVENT DATE: 20231120
